FAERS Safety Report 9886230 (Version 1)
Quarter: 2014Q1

REPORT INFORMATION
  Report Type: Spontaneous
  Country: US (occurrence: US)
  Receive Date: 20140210
  Receipt Date: 20140210
  Transmission Date: 20141002
  Serious: No
  Sender: FDA-Public Use
  Company Number: US-B.I. PHARMACEUTICALS,INC./RIDGEFIELD-2014-BI-05457BI

PATIENT
  Sex: 0

DRUGS (3)
  1. VIRAMUNE [Suspect]
     Indication: PRODUCT USED FOR UNKNOWN INDICATION
     Route: 065
  2. VIRAMUNE [Suspect]
     Route: 065
  3. TRUVADA [Concomitant]
     Route: 065

REACTIONS (2)
  - Antiviral drug level below therapeutic [Unknown]
  - Medication residue present [Unknown]
